FAERS Safety Report 18264920 (Version 3)
Quarter: 2020Q4

REPORT INFORMATION
  Report Type: Report from Study
  Country: None (occurrence: US)
  Receive Date: 20200915
  Receipt Date: 20201013
  Transmission Date: 20210113
  Serious: Yes (Hospitalization)
  Sender: FDA-Public Use
  Company Number: US-ABBVIE-20K-163-3565008-00

PATIENT
  Age: 77 Year
  Sex: Female
  Weight: 59.02 kg

DRUGS (2)
  1. SYNTHROID [Concomitant]
     Active Substance: LEVOTHYROXINE SODIUM
     Indication: THYROID DISORDER
  2. HUMIRA [Suspect]
     Active Substance: ADALIMUMAB
     Indication: RHEUMATOID ARTHRITIS
     Route: 058
     Dates: end: 202007

REACTIONS (3)
  - Erythema [Recovered/Resolved]
  - Chronic obstructive pulmonary disease [Recovering/Resolving]
  - Skin laceration [Recovered/Resolved]

NARRATIVE: CASE EVENT DATE: 2015
